FAERS Safety Report 17894919 (Version 1)
Quarter: 2020Q2

REPORT INFORMATION
  Report Type: Spontaneous
  Country: NL (occurrence: NL)
  Receive Date: 20200615
  Receipt Date: 20200615
  Transmission Date: 20200714
  Serious: Yes (Death, Life-Threatening, Hospitalization, Other)
  Sender: FDA-Public Use
  Company Number: NL-ACCORD-185192

PATIENT
  Age: 17 Year
  Sex: Male

DRUGS (2)
  1. CEFPROZIL. [Concomitant]
     Active Substance: CEFPROZIL
     Indication: ACUTE SINUSITIS
     Route: 048
  2. ISOSORBIDE. [Suspect]
     Active Substance: ISOSORBIDE
     Indication: PRODUCT USED FOR UNKNOWN INDICATION
     Dosage: STRENGTH: 20 MG
     Route: 048

REACTIONS (3)
  - Completed suicide [Fatal]
  - Wrong product administered [Fatal]
  - Product dispensing error [Fatal]
